FAERS Safety Report 5862991-1 (Version None)
Quarter: 2008Q3

REPORT INFORMATION
  Report Type: 
  Country: None (occurrence: None)
  Receive Date: 20080828
  Receipt Date: 20080820
  Transmission Date: 20090109
  Serious: Yes (Other)
  Sender: FDA-Public Use
  Company Number: US-AVENTIS-200815501US

PATIENT
  Sex: Female
  Weight: 61.7 kg

DRUGS (3)
  1. LEFLUNOMIDE [Suspect]
     Indication: RHEUMATOID ARTHRITIS
     Dates: start: 20070301
  2. LEFLUNOMIDE [Suspect]
     Dosage: DOSE: UNK
     Dates: end: 20061101
  3. TAMBOCOR [Concomitant]
     Indication: ATRIAL FIBRILLATION
     Dosage: DOSE: UNK

REACTIONS (3)
  - DYSPNOEA [None]
  - PULMONARY HYPERTENSION [None]
  - SPEECH DISORDER [None]
